FAERS Safety Report 12274237 (Version 1)
Quarter: 2016Q2

REPORT INFORMATION
  Report Type: Spontaneous
  Country: US (occurrence: US)
  Receive Date: 20160415
  Receipt Date: 20160415
  Transmission Date: 20160815
  Serious: No
  Sender: FDA-Public Use
  Company Number: US-ALLERGAN-1510089US

PATIENT
  Age: 90 Year
  Sex: Male
  Weight: 73 kg

DRUGS (3)
  1. TRAVATAN [Suspect]
     Active Substance: TRAVOPROST
     Indication: GLAUCOMA
     Dosage: 2 GTT, QHS
     Route: 047
  2. XALATAN [Suspect]
     Active Substance: LATANOPROST
     Indication: GLAUCOMA
     Dosage: 2 GTT, QHS
     Route: 047
  3. LUMIGAN [Suspect]
     Active Substance: BIMATOPROST
     Indication: GLAUCOMA
     Dosage: 2 GTT, QHS
     Route: 047

REACTIONS (2)
  - Eye irritation [Recovered/Resolved]
  - Drug ineffective [Unknown]
